FAERS Safety Report 7329385-3 (Version None)
Quarter: 2011Q1

REPORT INFORMATION
  Report Type: 
  Country: None (occurrence: None)
  Receive Date: 20110303
  Receipt Date: 20110218
  Transmission Date: 20110831
  Serious: Yes (Hospitalization)
  Sender: FDA-Public Use
  Company Number: HR-PFIZER INC-2011042746

PATIENT
  Sex: Male

DRUGS (5)
  1. DIFETOIN [Interacting]
     Indication: PARTIAL SEIZURES
     Dosage: 400 MG, 2X/DAY
     Route: 048
     Dates: start: 20101203, end: 20101212
  2. AGGRENOX [Concomitant]
  3. LIPEX [Concomitant]
  4. CORDARONE [Suspect]
     Dosage: 100 MG, 1X/DAY
     Route: 048
  5. PHEMITON [Concomitant]

REACTIONS (7)
  - CEREBELLAR ATAXIA [None]
  - SPEECH DISORDER [None]
  - FALL [None]
  - DRUG INTERACTION [None]
  - GAIT DISTURBANCE [None]
  - NAUSEA [None]
  - MUSCULAR WEAKNESS [None]
